FAERS Safety Report 25199596 (Version 3)
Quarter: 2025Q2

REPORT INFORMATION
  Report Type: Spontaneous
  Country: ES (occurrence: ES)
  Receive Date: 20250415
  Receipt Date: 20250523
  Transmission Date: 20250717
  Serious: Yes (Other)
  Sender: SANDOZ
  Company Number: ES-002147023-NVSC2025ES061124

PATIENT
  Age: 14 Year
  Sex: Male

DRUGS (7)
  1. DECADRON (DEXAMETHASONE SODIUM PHOSPHATE) [Suspect]
     Active Substance: DEXAMETHASONE SODIUM PHOSPHATE
     Indication: Vernal keratoconjunctivitis
     Dosage: 0.1 %, Q6H
     Route: 065
  2. DEXAMETHASONE\TOBRAMYCIN [Suspect]
     Active Substance: DEXAMETHASONE\TOBRAMYCIN
     Indication: Vernal keratoconjunctivitis
     Dosage: UNK UNK, Q8H (3 MG /ML PLUS 1 MG /ML)
     Route: 065
  3. OMALIZUMAB [Suspect]
     Active Substance: OMALIZUMAB
     Indication: Vernal keratoconjunctivitis
     Dosage: 300 MG, Q2W (150 MG IN EACH EYE)
     Route: 058
  4. CETIRIZINE [Concomitant]
     Active Substance: CETIRIZINE HYDROCHLORIDE
     Indication: Vernal keratoconjunctivitis
     Dosage: 20 MG, Q24H
     Route: 065
  5. CYCLOSPORINE [Concomitant]
     Active Substance: CYCLOSPORINE
     Indication: Vernal keratoconjunctivitis
     Dosage: 1 %, Q12H
     Route: 065
  6. FLUORESCEIN [Concomitant]
     Active Substance: FLUORESCEIN
     Indication: Product used for unknown indication
     Route: 065
  7. TACROLIMUS [Concomitant]
     Active Substance: TACROLIMUS
     Indication: Vernal keratoconjunctivitis
     Dosage: 0.025 %, Q12H
     Route: 065

REACTIONS (6)
  - Corneal leukoma [Unknown]
  - Vernal keratoconjunctivitis [Recovering/Resolving]
  - Blood immunoglobulin E increased [Recovering/Resolving]
  - Therapeutic product effect incomplete [Unknown]
  - Drug ineffective [Unknown]
  - Off label use [Unknown]
